FAERS Safety Report 6215787-5 (Version None)
Quarter: 2009Q2

REPORT INFORMATION
  Report Type: 
  Country: None (occurrence: None)
  Receive Date: 20090603
  Receipt Date: 20090520
  Transmission Date: 20091009
  Serious: Yes (Hospitalization)
  Sender: FDA-Public Use
  Company Number: US-GENENTECH-283615

PATIENT
  Sex: Male
  Weight: 86.4 kg

DRUGS (1)
  1. RAPTIVA [Suspect]
     Indication: PSORIASIS
     Dosage: 0.9 ML, 1/WEEK
     Route: 058
     Dates: start: 20040101, end: 20090513

REACTIONS (7)
  - HEARING IMPAIRED [None]
  - INFLUENZA [None]
  - LUNG NEOPLASM [None]
  - OTITIS MEDIA CHRONIC [None]
  - PNEUMONIA [None]
  - PNEUMOTHORAX [None]
  - PROGRESSIVE MULTIFOCAL LEUKOENCEPHALOPATHY [None]
